FAERS Safety Report 22622561 (Version 1)
Quarter: 2023Q2

REPORT INFORMATION
  Report Type: Spontaneous
  Country: US (occurrence: US)
  Receive Date: 20230621
  Receipt Date: 20230621
  Transmission Date: 20230722
  Serious: No
  Sender: FDA-Public Use
  Company Number: US-ASTELLAS-2022US034699

PATIENT
  Age: 84 Year
  Sex: Female
  Weight: 61.678 kg

DRUGS (10)
  1. SOLIFENACIN [Suspect]
     Active Substance: SOLIFENACIN
     Indication: Product used for unknown indication
     Dosage: UNK UNK, UNKNOWN FREQ.
     Route: 065
  2. FESOTERODINE [Suspect]
     Active Substance: FESOTERODINE
     Indication: Product used for unknown indication
     Dosage: UNK UNK, UNKNOWN FREQ.
     Route: 065
  3. CALCIUM [Suspect]
     Active Substance: CALCIUM
     Indication: Product used for unknown indication
     Dosage: UNK UNK, UNKNOWN FREQ.
     Route: 065
  4. ACTONEL [Concomitant]
     Active Substance: RISEDRONATE SODIUM
     Indication: Bone disorder
     Dosage: 150 MG, OTHER (ONCE A MONTH)
     Route: 065
  5. BONIVA [Concomitant]
     Active Substance: IBANDRONATE SODIUM
     Indication: Product used for unknown indication
     Dosage: UNK UNK, UNKNOWN FREQ.
     Route: 065
  6. FOSAMAX [Concomitant]
     Active Substance: ALENDRONATE SODIUM
     Indication: Bone disorder
     Dosage: UNK UNK, UNKNOWN FREQ.
     Route: 065
  7. DETROL [Concomitant]
     Active Substance: TOLTERODINE TARTRATE
     Indication: Product used for unknown indication
     Route: 065
  8. OXYBUTYNIN [Concomitant]
     Active Substance: OXYBUTYNIN
     Indication: Product used for unknown indication
     Dosage: UNK UNK, UNKNOWN FREQ.
     Route: 065
  9. DETROL LA [Concomitant]
     Active Substance: TOLTERODINE TARTRATE
     Indication: Product used for unknown indication
     Route: 065
  10. ZETIA [Concomitant]
     Active Substance: EZETIMIBE
     Indication: Product used for unknown indication
     Dosage: UNK UNK, UNKNOWN FREQ.
     Route: 065

REACTIONS (2)
  - Abdominal distension [Unknown]
  - Flatulence [Unknown]
